FAERS Safety Report 12249993 (Version 2)
Quarter: 2016Q3

REPORT INFORMATION
  Report Type: Spontaneous
  Country: JP (occurrence: JP)
  Receive Date: 20160408
  Receipt Date: 20160829
  Transmission Date: 20161109
  Serious: Yes (Death)
  Sender: FDA-Public Use
  Company Number: JP-EISAI MEDICAL RESEARCH-EC-2016-015901

PATIENT
  Age: 66 Year
  Sex: Female

DRUGS (8)
  1. ADRIAMYCIN [Suspect]
     Active Substance: DOXORUBICIN HYDROCHLORIDE
     Indication: BREAST CANCER STAGE III
     Dosage: TOTAL DOSE: 720 MG
     Route: 041
     Dates: start: 201112, end: 2012
  2. HALAVEN [Suspect]
     Active Substance: ERIBULIN MESYLATE
     Indication: BREAST CANCER STAGE III
     Dosage: TOTAL DOSE (28.8 MG)
     Route: 041
  3. PACLITAXEL. [Suspect]
     Active Substance: PACLITAXEL
     Indication: BREAST CANCER STAGE III
     Dosage: TOTAL DOSE: 3120 MG
     Route: 041
  4. LETROZOLE. [Suspect]
     Active Substance: LETROZOLE
     Indication: BREAST CANCER STAGE III
     Dosage: UNKNOWN
     Route: 041
  5. FULVESTRANT [Suspect]
     Active Substance: FULVESTRANT
     Indication: BREAST CANCER STAGE III
     Dosage: UNKNOWN
     Route: 041
  6. CYCLOPHOSPHAMIDE. [Suspect]
     Active Substance: CYCLOPHOSPHAMIDE
     Indication: BREAST CANCER STAGE III
     Dosage: TOTAL DOSE: 7200 MG
     Route: 041
     Dates: start: 201112, end: 2012
  7. CAPECITABIN [Suspect]
     Active Substance: CAPECITABINE
     Indication: BREAST CANCER STAGE III
     Dosage: TOTAL DOSE: 38400 MG
     Route: 041
  8. CYCLOPHOSPHAMID [Suspect]
     Active Substance: CYCLOPHOSPHAMIDE
     Indication: BREAST CANCER STAGE III
     Dosage: TOTAL DOSE: 1600 MG
     Route: 041

REACTIONS (1)
  - Acute myeloid leukaemia [Fatal]

NARRATIVE: CASE EVENT DATE: 201501
